FAERS Safety Report 7248556-8 (Version None)
Quarter: 2011Q1

REPORT INFORMATION
  Report Type: 
  Country: None (occurrence: None)
  Receive Date: 20110128
  Receipt Date: 20110120
  Transmission Date: 20110831
  Serious: Yes (Other)
  Sender: FDA-Public Use
  Company Number: BR-RANBAXY-2011R5-41216

PATIENT

DRUGS (2)
  1. AMOXICILLIN AND CLAVULANATE POTASSIUM [Suspect]
     Indication: PNEUMONIA
     Dosage: 2 ML, BID
     Route: 048
     Dates: start: 20110112
  2. PREDSIM [Concomitant]
     Indication: PRODUCT USED FOR UNKNOWN INDICATION
     Dosage: 7 DF, BID
     Route: 065
     Dates: start: 20110109, end: 20110114

REACTIONS (2)
  - DIARRHOEA [None]
  - FONTANELLE BULGING [None]
